FAERS Safety Report 5063504-7 (Version None)
Quarter: 2006Q3

REPORT INFORMATION
  Report Type: 
  Country: None (occurrence: None)
  Receive Date: 20060727
  Receipt Date: 20060713
  Transmission Date: 20061208
  Serious: Yes (Other)
  Sender: FDA-Public Use
  Company Number: US-ROCHE-456641

PATIENT
  Age: 63 Year
  Sex: Female
  Weight: 125.1 kg

DRUGS (4)
  1. XENICAL [Suspect]
     Route: 048
     Dates: start: 20050112, end: 20060420
  2. LIPITOR [Concomitant]
     Route: 048
     Dates: start: 20010615
  3. GLUCOPHAGE [Concomitant]
     Route: 048
     Dates: start: 20010615
  4. BLOOD PRESSURE MEDICATIONS NOS [Concomitant]

REACTIONS (1)
  - ATRIAL FIBRILLATION [None]
